FAERS Safety Report 9498577 (Version 2)
Quarter: 2013Q3

REPORT INFORMATION
  Report Type: Spontaneous
  Country: US (occurrence: US)
  Receive Date: 20130904
  Receipt Date: 20130920
  Transmission Date: 20140515
  Serious: No
  Sender: FDA-Public Use
  Company Number: US-PFIZER INC-2013251205

PATIENT
  Sex: Female

DRUGS (7)
  1. GABAPENTIN [Suspect]
     Indication: BACK PAIN
     Dosage: 100 MG, UNK
     Dates: start: 20130828
  2. GABAPENTIN [Suspect]
     Indication: TENDONITIS
  3. GABAPENTIN [Suspect]
     Indication: NERVE COMPRESSION
  4. GABAPENTIN [Suspect]
     Indication: INTERVERTEBRAL DISC COMPRESSION
  5. TRAZODONE [Concomitant]
     Dosage: UNK
  6. ATIVAN [Concomitant]
     Dosage: UNK (A HALF)
  7. OXYCODONE [Concomitant]
     Indication: PAIN
     Dosage: UNK

REACTIONS (5)
  - Off label use [Unknown]
  - Drug ineffective for unapproved indication [Unknown]
  - Pain in extremity [Unknown]
  - Arthralgia [Unknown]
  - Neuralgia [Unknown]
